FAERS Safety Report 7029700-4 (Version None)
Quarter: 2010Q4

REPORT INFORMATION
  Report Type: 
  Country: None (occurrence: None)
  Receive Date: 20101005
  Receipt Date: 20101005
  Transmission Date: 20110411
  Serious: Yes (Hospitalization)
  Sender: FDA-Public Use
  Company Number: None

PATIENT
  Sex: Female
  Weight: 51.8 kg

DRUGS (1)
  1. TAXOL [Suspect]
     Dosage: 122 MG
     Dates: end: 20100922

REACTIONS (2)
  - HALLUCINATIONS, MIXED [None]
  - SUICIDAL IDEATION [None]
